FAERS Safety Report 12965182 (Version 1)
Quarter: 2016Q4

REPORT INFORMATION
  Report Type: Spontaneous
  Country: US (occurrence: US)
  Receive Date: 20161122
  Receipt Date: 20161122
  Transmission Date: 20170207
  Serious: No
  Sender: FDA-Public Use
  Company Number: US-PERNIX THERAPEUTICS-2016PT000162

PATIENT

DRUGS (1)
  1. ZOHYDRO [Suspect]
     Active Substance: HYDROCODONE BITARTRATE
     Indication: PAIN
     Dosage: 30 MG, BID
     Route: 048
     Dates: end: 20160724

REACTIONS (3)
  - Headache [Recovering/Resolving]
  - Diarrhoea [Recovered/Resolved]
  - Feeling cold [Recovering/Resolving]

NARRATIVE: CASE EVENT DATE: 20160726
